FAERS Safety Report 7515737-5 (Version None)
Quarter: 2011Q2

REPORT INFORMATION
  Report Type: 
  Country: None (occurrence: None)
  Receive Date: 20110601
  Receipt Date: 20100725
  Transmission Date: 20111010
  Serious: No
  Sender: FDA-Public Use
  Company Number: US-PFIZER INC-2010093604

PATIENT
  Sex: Female
  Weight: 90.703 kg

DRUGS (3)
  1. LOESTRIN 1.5/30 [Concomitant]
     Indication: CONTRACEPTION
     Dosage: UNK
  2. CHANTIX [Suspect]
     Indication: SMOKING CESSATION THERAPY
     Dosage: 0.5 MG, 1X/DAY
     Dates: start: 20100721
  3. CHANTIX [Suspect]
     Dosage: 0.5 MG, 2X/DAY

REACTIONS (2)
  - ABNORMAL DREAMS [None]
  - INSOMNIA [None]
